FAERS Safety Report 25177327 (Version 2)
Quarter: 2025Q2

REPORT INFORMATION
  Report Type: Spontaneous
  Country: US (occurrence: US)
  Receive Date: 20250409
  Receipt Date: 20250417
  Transmission Date: 20250717
  Serious: No
  Sender: BIOGEN
  Company Number: US-BIOGEN-2024BI01285305

PATIENT
  Sex: Female

DRUGS (16)
  1. PLEGRIDY [Suspect]
     Active Substance: PEGINTERFERON BETA-1A
     Indication: Multiple sclerosis
     Route: 050
     Dates: start: 20240830, end: 20250408
  2. FAMOTIDINE [Concomitant]
     Active Substance: FAMOTIDINE
     Route: 050
  3. TENORMIN [Concomitant]
     Active Substance: ATENOLOL
     Route: 050
  4. PRILOSEC [Concomitant]
     Active Substance: OMEPRAZOLE MAGNESIUM
     Route: 050
  5. WELLBUTRIN XL [Concomitant]
     Active Substance: BUPROPION HYDROCHLORIDE
     Route: 050
  6. MOTRIN [Concomitant]
     Active Substance: IBUPROFEN
     Route: 050
  7. ZEPBOUND [Concomitant]
     Active Substance: TIRZEPATIDE
     Route: 050
  8. TRAZODONE HCL [Concomitant]
     Active Substance: TRAZODONE HYDROCHLORIDE
     Route: 050
  9. ZYRTEC [Concomitant]
     Active Substance: CETIRIZINE HYDROCHLORIDE
     Route: 050
  10. VITAMIN D [Concomitant]
     Active Substance: VITAMIN D NOS
     Route: 050
  11. DOCUSATE SODIUM [Concomitant]
     Active Substance: DOCUSATE SODIUM
     Route: 050
  12. ROBAXIN [Concomitant]
     Active Substance: METHOCARBAMOL
     Route: 050
  13. PROBIOTICS NOS [Concomitant]
     Active Substance: PROBIOTICS NOS
     Route: 050
  14. VALIUM [Concomitant]
     Active Substance: DIAZEPAM
     Route: 050
  15. PRIMROSE OIL [Concomitant]
     Route: 050
  16. TYLENOL [Concomitant]
     Active Substance: ACETAMINOPHEN
     Route: 050

REACTIONS (5)
  - Lymphadenopathy [Recovered/Resolved]
  - Injection site erythema [Not Recovered/Not Resolved]
  - Hypersensitivity [Unknown]
  - Injection site pain [Recovered/Resolved]
  - Injection site pruritus [Recovered/Resolved]
